FAERS Safety Report 21376785 (Version 1)
Quarter: 2022Q3

REPORT INFORMATION
  Report Type: Spontaneous
  Country: US (occurrence: US)
  Receive Date: 20220926
  Receipt Date: 20220926
  Transmission Date: 20221027
  Serious: No
  Sender: FDA-Public Use
  Company Number: US-BRISTOL-MYERS SQUIBB COMPANY-2022-111632

PATIENT
  Age: 33 Year
  Sex: Female

DRUGS (1)
  1. REVLIMID [Suspect]
     Active Substance: LENALIDOMIDE
     Indication: Plasma cell myeloma
     Dosage: FOR 21 DAYS ON THEN 7 DAYS OFF
     Route: 048
     Dates: start: 20210222

REACTIONS (4)
  - Peripheral swelling [Unknown]
  - Chondrocalcinosis pyrophosphate [Unknown]
  - Pain in extremity [Unknown]
  - Infection [Unknown]

NARRATIVE: CASE EVENT DATE: 20220923
